FAERS Safety Report 7738445-4 (Version None)
Quarter: 2011Q3

REPORT INFORMATION
  Report Type: 
  Country: None (occurrence: None)
  Receive Date: 20110908
  Receipt Date: 20110831
  Transmission Date: 20111222
  Serious: Yes (Other)
  Sender: FDA-Public Use
  Company Number: US-US-EMD SERONO, INC.-7081513

PATIENT
  Sex: Male

DRUGS (2)
  1. UNSPECIFIED ANTIRETROVIRAL THERAPY [Concomitant]
     Dates: start: 19940101
  2. EGRIFTA [Suspect]
     Indication: LIPODYSTROPHY ACQUIRED
     Route: 058
     Dates: start: 20110101

REACTIONS (3)
  - WEIGHT INCREASED [None]
  - T-LYMPHOCYTE COUNT INCREASED [None]
  - MASS [None]
